FAERS Safety Report 16786359 (Version 1)
Quarter: 2019Q3

REPORT INFORMATION
  Report Type: Spontaneous
  Country: CN (occurrence: CN)
  Receive Date: 20190909
  Receipt Date: 20190909
  Transmission Date: 20191005
  Serious: Yes (Hospitalization, Other)
  Sender: FDA-Public Use
  Company Number: CN-PFIZER INC-2019380400

PATIENT
  Age: 61 Year
  Sex: Male
  Weight: 59 kg

DRUGS (5)
  1. PHARMORUBICIN [Suspect]
     Active Substance: EPIRUBICIN
     Indication: CHEMOTHERAPY
     Dosage: 100 MG, 1X/DAY
     Route: 042
     Dates: start: 20190305, end: 20190627
  2. VINCRISTINE SULFATE. [Suspect]
     Active Substance: VINCRISTINE SULFATE
     Indication: CHEMOTHERAPY
     Dosage: 2 MG, 1X/DAY
     Route: 042
     Dates: start: 20190305, end: 20190627
  3. PREDNISONE ACETATE [Concomitant]
     Active Substance: PREDNISONE ACETATE
     Indication: CHEMOTHERAPY
     Dosage: 100 MG, 1X/DAY
     Route: 048
     Dates: start: 20190305, end: 20190627
  4. MABTHERA [Concomitant]
     Active Substance: RITUXIMAB
     Indication: THERAPEUTIC PROCEDURE
     Dosage: 600 MG, 1X/DAY
     Route: 041
     Dates: start: 20190305, end: 20190627
  5. CYCLOPHOSPHAMIDE. [Suspect]
     Active Substance: CYCLOPHOSPHAMIDE
     Indication: CHEMOTHERAPY
     Dosage: 1.2 G, 1X/DAY
     Route: 041
     Dates: start: 20190305, end: 20190627

REACTIONS (1)
  - Bone marrow failure [Recovered/Resolved]

NARRATIVE: CASE EVENT DATE: 20190627
